FAERS Safety Report 25906370 (Version 1)
Quarter: 2025Q4

REPORT INFORMATION
  Report Type: Spontaneous
  Country: US (occurrence: None)
  Receive Date: 20251009
  Receipt Date: 20251009
  Transmission Date: 20260117
  Serious: Yes (Life-Threatening, Hospitalization)
  Sender: FDA-CTU
  Company Number: None

PATIENT
  Age: 62 Year
  Sex: Female
  Weight: 81 kg

DRUGS (1)
  1. JARDIANCE [Suspect]
     Active Substance: EMPAGLIFLOZIN
     Indication: Type 2 diabetes mellitus
     Dosage: OTHER QUANTITY : 1 TABLET(S);?
     Route: 048
     Dates: start: 20240430, end: 20250909

REACTIONS (6)
  - Necrotising fasciitis [None]
  - Pyrexia [None]
  - Chills [None]
  - Genital rash [None]
  - Rash erythematous [None]
  - Wound [None]

NARRATIVE: CASE EVENT DATE: 20250908
